FAERS Safety Report 17255873 (Version 1)
Quarter: 2020Q1

REPORT INFORMATION
  Report Type: Spontaneous
  Country: FR (occurrence: FR)
  Receive Date: 20200110
  Receipt Date: 20200110
  Transmission Date: 20200409
  Serious: Yes (Hospitalization)
  Sender: FDA-Public Use
  Company Number: FR-TEVA-2020-FR-1165241

PATIENT
  Age: 89 Year
  Sex: Female
  Weight: 39.5 kg

DRUGS (11)
  1. NEBIVOLOL. [Suspect]
     Active Substance: NEBIVOLOL
     Indication: HYPERTENSION
     Dosage: 2.5 MG PER DAY
     Route: 048
  2. TEMESTA 1 MG, COMPRIME SECABLE [Suspect]
     Active Substance: LORAZEPAM
     Indication: PRODUCT USED FOR UNKNOWN INDICATION
     Dosage: 1 DOSAGE FORMS PER DAY
     Route: 048
     Dates: end: 20191208
  3. PERINDOPRIL [Suspect]
     Active Substance: PERINDOPRIL
     Indication: HYPERTENSION
     Dosage: 4 MG PER DAY
     Route: 048
  4. MIRTAZAPINE. [Suspect]
     Active Substance: MIRTAZAPINE
     Indication: PRODUCT USED FOR UNKNOWN INDICATION
     Dosage: 15 MG PER DAY
     Route: 048
     Dates: start: 20191204, end: 20191208
  5. FUROSEMIDE. [Suspect]
     Active Substance: FUROSEMIDE
     Indication: HYPERTENSION
     Dosage: 20 MG PER DAY
     Route: 048
  6. DIFFU K, GELULE [Concomitant]
     Active Substance: POTASSIUM CHLORIDE
  7. TOPALGIC 50 MG, GELULE [Suspect]
     Active Substance: TRAMADOL HYDROCHLORIDE
     Indication: PAIN
     Dosage: 3 DOSAGE FORMS PER DAY
     Route: 048
     Dates: start: 201911, end: 20191208
  8. ACIDE FOLIQUE [Concomitant]
     Active Substance: FOLIC ACID
  9. DOLIPRANE [Concomitant]
     Active Substance: ACETAMINOPHEN
  10. LOVENOX [Concomitant]
     Active Substance: ENOXAPARIN SODIUM
  11. AMLODIPINE [Suspect]
     Active Substance: AMLODIPINE BESYLATE
     Indication: HYPERTENSION
     Dosage: 5 MG PER DAY
     Route: 048

REACTIONS (2)
  - Fall [Recovered/Resolved]
  - Hallucination, visual [Recovered/Resolved]

NARRATIVE: CASE EVENT DATE: 20191208
